FAERS Safety Report 15892578 (Version 1)
Quarter: 2019Q1

REPORT INFORMATION
  Report Type: Report from Study
  Country: US (occurrence: US)
  Receive Date: 20190130
  Receipt Date: 20190130
  Transmission Date: 20190417
  Serious: No
  Sender: FDA-Public Use
  Company Number: US-EXELIXIS-CABO-18016044

PATIENT
  Sex: Male

DRUGS (5)
  1. MULTIVITAMINS, COMBINATIONS [Concomitant]
     Active Substance: VITAMINS
  2. GLUCOSAMINE [Concomitant]
     Active Substance: GLUCOSAMINE
  3. LISINOPRIL. [Concomitant]
     Active Substance: LISINOPRIL
  4. ALLEGRA [Concomitant]
     Active Substance: FEXOFENADINE HYDROCHLORIDE
  5. CABOMETYX [Suspect]
     Active Substance: CABOZANTINIB S-MALATE
     Indication: RENAL CANCER
     Dosage: 60 MG, QD (1 H BEFORE OR 2 H AFTER MEAL)
     Route: 048
     Dates: start: 20180828

REACTIONS (4)
  - Oral pain [Unknown]
  - Hypertension [Unknown]
  - Fatigue [Unknown]
  - Tongue discomfort [Not Recovered/Not Resolved]

NARRATIVE: CASE EVENT DATE: 2018
